FAERS Safety Report 7534283-6 (Version None)
Quarter: 2011Q2

REPORT INFORMATION
  Report Type: 
  Country: None (occurrence: None)
  Receive Date: 20110608
  Receipt Date: 20070212
  Transmission Date: 20111010
  Serious: Yes (Death)
  Sender: FDA-Public Use
  Company Number: PHNR2006AU01452

PATIENT
  Sex: Female

DRUGS (4)
  1. PANTOPRAZOLE [Concomitant]
     Dosage: 40 MG, QD
     Dates: start: 20060801
  2. LEVOTHYROXINE SODIUM [Concomitant]
     Dosage: 100 MG, QD
     Dates: start: 20060201
  3. CHLORVESCENT [Concomitant]
     Dosage: BID
     Dates: start: 20060801
  4. FEMARA [Suspect]
     Indication: BREAST CANCER
     Dosage: 2.5 MG, QD
     Dates: start: 20050627, end: 20060725

REACTIONS (2)
  - DISEASE PROGRESSION [None]
  - SEPTIC SHOCK [None]
